FAERS Safety Report 6655233-0 (Version None)
Quarter: 2010Q1

REPORT INFORMATION
  Report Type: 
  Country: None (occurrence: None)
  Receive Date: 20100329
  Receipt Date: 20100318
  Transmission Date: 20100710
  Serious: Yes (Hospitalization)
  Sender: FDA-Public Use
  Company Number: FR-ELI_LILLY_AND_COMPANY-FR201003004687

PATIENT
  Sex: Male

DRUGS (11)
  1. EFFIENT [Suspect]
     Indication: CORONARY ARTERY INSUFFICIENCY
     Dosage: 10 MG, UNKNOWN
     Route: 048
     Dates: start: 20100201, end: 20100101
  2. KARDEGIC [Concomitant]
     Indication: CORONARY ARTERY INSUFFICIENCY
     Dosage: 160 MG, UNKNOWN
     Route: 048
     Dates: start: 20100201, end: 20100205
  3. KARDEGIC [Concomitant]
     Dosage: UNK, UNKNOWN
     Route: 065
     Dates: start: 20100201
  4. BISOPROLOL FUMARATE [Concomitant]
     Indication: CORONARY ARTERY INSUFFICIENCY
     Dosage: 10 MG, UNKNOWN
     Route: 048
     Dates: start: 20100201, end: 20100205
  5. TAHOR [Concomitant]
     Indication: CORONARY ARTERY INSUFFICIENCY
     Dosage: 80 MG, UNKNOWN
     Route: 048
     Dates: start: 20100201, end: 20100205
  6. COVERSYL [Concomitant]
     Indication: CORONARY ARTERY INSUFFICIENCY
     Dosage: 2.5 MG, UNKNOWN
     Route: 048
     Dates: start: 20100201, end: 20100205
  7. PLAVIX [Concomitant]
     Dates: start: 20100201, end: 20100216
  8. TICLID [Concomitant]
     Dates: start: 20100216
  9. SECTRAL [Concomitant]
     Dates: start: 20100216
  10. IMOVANE [Concomitant]
     Dates: start: 20100216
  11. MOTILIUM [Concomitant]
     Dates: start: 20100216

REACTIONS (2)
  - PRURITUS [None]
  - URTICARIA [None]
